FAERS Safety Report 25937778 (Version 1)
Quarter: 2025Q4

REPORT INFORMATION
  Report Type: Report from Study
  Country: US (occurrence: US)
  Receive Date: 20251018
  Receipt Date: 20251018
  Transmission Date: 20260118
  Serious: Yes (Other)
  Sender: ALEXION PHARMACEUTICALS
  Company Number: US-AstraZeneca-2024A198391

PATIENT
  Sex: Female

DRUGS (1)
  1. LYNPARZA [Suspect]
     Active Substance: OLAPARIB
     Indication: Malignant peritoneal neoplasm
     Dosage: 100 MILLIGRAM, BID
     Dates: start: 202307

REACTIONS (4)
  - Neuropathy peripheral [Unknown]
  - Underdose [Unknown]
  - Rash [Unknown]
  - Rash pruritic [Unknown]
